FAERS Safety Report 24903925 (Version 1)
Quarter: 2025Q1

REPORT INFORMATION
  Report Type: Spontaneous
  Country: US (occurrence: None)
  Receive Date: 20250129
  Receipt Date: 20250129
  Transmission Date: 20250408
  Serious: Yes (Hospitalization, Other)
  Sender: FDA-CTU
  Company Number: None

PATIENT
  Age: 8 Year
  Sex: Male
  Weight: 24.5 kg

DRUGS (1)
  1. ASPARLAS [Suspect]
     Active Substance: CALASPARGASE PEGOL-MKNL
     Indication: T-cell type acute leukaemia
     Route: 042
     Dates: start: 20250121, end: 20250121

REACTIONS (6)
  - Haemorrhage [None]
  - Unresponsive to stimuli [None]
  - Pulse abnormal [None]
  - Subarachnoid haemorrhage [None]
  - Intraventricular haemorrhage [None]
  - Procedural complication [None]

NARRATIVE: CASE EVENT DATE: 20250122
